FAERS Safety Report 9213041 (Version 1)
Quarter: 2013Q1

REPORT INFORMATION
  Report Type: Spontaneous
  Country: US (occurrence: None)
  Receive Date: 20120820
  Receipt Date: 20120820
  Transmission Date: 20140127
  Serious: No
  Sender: FDA-Public Use
  Company Number: 1000036759

PATIENT
  Age: 51 Year
  Sex: Female

DRUGS (2)
  1. VIIBRYD [Suspect]
     Indication: DEPRESSION
     Route: 048
     Dates: start: 20120628
  2. AMLODIPINE (AMLODIPINE) (AMLODIPINE) [Concomitant]

REACTIONS (3)
  - Anxiety [None]
  - Palpitations [None]
  - Nausea [None]
